FAERS Safety Report 6149722-5 (Version None)
Quarter: 2009Q2

REPORT INFORMATION
  Report Type: 
  Country: None (occurrence: None)
  Receive Date: 20090403
  Receipt Date: 20090210
  Transmission Date: 20091009
  Serious: Yes (Other)
  Sender: FDA-Public Use
  Company Number: 56683

PATIENT
  Age: 74 Year
  Sex: Male

DRUGS (2)
  1. LORAZEPAM [Suspect]
     Indication: STATUS EPILEPTICUS
     Dosage: 2MG IV X 2
     Route: 042
     Dates: start: 20090210
  2. ARICEPT [Concomitant]

REACTIONS (1)
  - DRUG INEFFECTIVE [None]
